FAERS Safety Report 7639706-X (Version None)
Quarter: 2011Q3

REPORT INFORMATION
  Report Type: 
  Country: None (occurrence: None)
  Receive Date: 20110727
  Receipt Date: 20110725
  Transmission Date: 20111222
  Serious: Yes (Hospitalization, Other)
  Sender: FDA-Public Use
  Company Number: US-PFIZER INC-2011087674

PATIENT
  Sex: Male

DRUGS (1)
  1. CHANTIX [Suspect]
     Indication: SMOKING CESSATION THERAPY
     Dosage: STARTER PACK AND CONTINUING PACKS
     Dates: start: 20080811, end: 20090101

REACTIONS (8)
  - RENAL FAILURE [None]
  - ANXIETY [None]
  - DEPRESSION [None]
  - DIZZINESS [None]
  - COGNITIVE DISORDER [None]
  - SUICIDE ATTEMPT [None]
  - MOOD SWINGS [None]
  - AMNESIA [None]
